FAERS Safety Report 25814706 (Version 1)
Quarter: 2025Q3

REPORT INFORMATION
  Report Type: Spontaneous
  Country: US (occurrence: US)
  Receive Date: 20250917
  Receipt Date: 20250917
  Transmission Date: 20251020
  Serious: No
  Sender: ALVOGEN
  Company Number: US-ALVOGEN-2025096132

PATIENT

DRUGS (1)
  1. GRALISE [Suspect]
     Active Substance: GABAPENTIN
     Indication: Spinal fracture

REACTIONS (3)
  - Product use issue [Unknown]
  - Therapy interrupted [Unknown]
  - Product use in unapproved indication [Unknown]
